FAERS Safety Report 26200057 (Version 1)
Quarter: 2025Q4

REPORT INFORMATION
  Report Type: Spontaneous
  Country: US (occurrence: US)
  Receive Date: 20251225
  Receipt Date: 20251225
  Transmission Date: 20260118
  Serious: No
  Sender: RIGEL PHARMACEUTICALS
  Company Number: US-RIGEL Pharmaceuticals, INC.-20251000021

PATIENT
  Sex: Female

DRUGS (3)
  1. REZLIDHIA [Suspect]
     Active Substance: OLUTASIDENIB
     Indication: Product used for unknown indication
     Dosage: UNK
     Route: 065
  2. IDHIFA [Concomitant]
     Active Substance: ENASIDENIB MESYLATE
     Indication: Acute myeloid leukaemia
     Dosage: 50MG, QD
     Route: 048
     Dates: start: 20250605
  3. REZUROCK [Concomitant]
     Active Substance: BELUMOSUDIL
     Indication: Acute myeloid leukaemia
     Dosage: 200MG, BID
     Route: 048
     Dates: start: 20250508

REACTIONS (4)
  - Renal failure [Unknown]
  - Chest pain [Unknown]
  - Fatigue [Unknown]
  - Blood bilirubin increased [Unknown]
